FAERS Safety Report 8839771 (Version 1)
Quarter: 2012Q4

REPORT INFORMATION
  Report Type: 
  Country: US (occurrence: US)
  Receive Date: 20121015
  Receipt Date: 20121015
  Transmission Date: 20130627
  Serious: No
  Sender: FDA-Public Use
  Company Number: US-BRISTOL-MYERS SQUIBB COMPANY-16024267

PATIENT

DRUGS (1)
  1. KENALOG-40 INJ [Suspect]
     Dosage: intra-articular route
     Route: 008

REACTIONS (4)
  - Incorrect route of drug administration [Unknown]
  - Flushing [Unknown]
  - Hypervigilance [Unknown]
  - Increased appetite [Unknown]
